FAERS Safety Report 6336981-9 (Version None)
Quarter: 2009Q3

REPORT INFORMATION
  Report Type: 
  Country: None (occurrence: None)
  Receive Date: 20090901
  Receipt Date: 20090826
  Transmission Date: 20100115
  Serious: Yes (Hospitalization)
  Sender: FDA-Public Use
  Company Number: PHHO2009FR07061

PATIENT
  Sex: Female
  Weight: 48 kg

DRUGS (5)
  1. RAD 666 RAD+TAB+CMAS [Suspect]
     Indication: BREAST CANCER
     Dosage: 10 MG DAILY
     Route: 048
     Dates: start: 20090526
  2. TRASTUZUMAB [Concomitant]
     Indication: BREAST CANCER
  3. PACLITAXEL [Concomitant]
     Indication: BREAST CANCER
  4. EFFERALGAN [Concomitant]
     Indication: ABDOMINAL PAIN
     Dosage: UNK
     Route: 048
     Dates: start: 20090526
  5. PAROXETINE HCL [Concomitant]
     Indication: PROPHYLAXIS
     Dosage: 5 MG/DAY
     Dates: start: 20090526

REACTIONS (2)
  - DIARRHOEA [None]
  - VOMITING [None]
